FAERS Safety Report 11931061 (Version 1)
Quarter: 2016Q1

REPORT INFORMATION
  Report Type: Spontaneous
  Country: US (occurrence: US)
  Receive Date: 20160120
  Receipt Date: 20160120
  Transmission Date: 20160526
  Serious: No
  Sender: FDA-Public Use
  Company Number: US-GLAXOSMITHKLINE-US2016GSK004326

PATIENT
  Sex: Female

DRUGS (2)
  1. TANZEUM [Suspect]
     Active Substance: ALBIGLUTIDE
     Indication: GLUCOSE TOLERANCE IMPAIRED
  2. TANZEUM [Suspect]
     Active Substance: ALBIGLUTIDE
     Indication: INSULIN RESISTANT DIABETES
     Dosage: 50 MG, WE
     Dates: start: 2015

REACTIONS (3)
  - Product preparation error [Unknown]
  - Nausea [Unknown]
  - Product use issue [Unknown]
